FAERS Safety Report 6582436-6 (Version None)
Quarter: 2010Q1

REPORT INFORMATION
  Report Type: 
  Country: None (occurrence: None)
  Receive Date: 20100216
  Receipt Date: 20100203
  Transmission Date: 20100710
  Serious: Yes (Hospitalization)
  Sender: FDA-Public Use
  Company Number: PHHY2010FR05958

PATIENT
  Age: 64 Year
  Sex: Male

DRUGS (10)
  1. TAREG [Suspect]
  2. TENORDATE [Suspect]
  3. ZOCOR [Suspect]
     Dosage: 10 MG, UNK
  4. ZOCOR [Suspect]
     Dosage: UNK
     Dates: start: 20020211, end: 20030206
  5. ZYLORIC [Suspect]
     Dosage: 200 MG, UNK
  6. ZYLORIC [Suspect]
     Dosage: UNK
     Dates: start: 20010917
  7. LIPANOR [Concomitant]
     Dosage: UNK
     Dates: start: 20030206, end: 20040213
  8. FRACTAL [Concomitant]
     Dosage: UNK
     Dates: start: 20040213, end: 20050201
  9. CRESTOR [Concomitant]
     Dosage: 10 MG, UNK
     Dates: start: 20050201, end: 20070701
  10. CRESTOR [Concomitant]
     Dosage: 5 MG, UNK
     Dates: start: 20070701

REACTIONS (5)
  - BLOOD CREATINE PHOSPHOKINASE INCREASED [None]
  - BLOOD CREATINE PHOSPHOKINASE MB INCREASED [None]
  - INFARCTION [None]
  - MUSCLE DISORDER [None]
  - MYOPATHY [None]
